FAERS Safety Report 7765930-1 (Version None)
Quarter: 2011Q3

REPORT INFORMATION
  Report Type: 
  Country: None (occurrence: None)
  Receive Date: 20110921
  Receipt Date: 20110914
  Transmission Date: 20111222
  Serious: Yes (Hospitalization)
  Sender: FDA-Public Use
  Company Number: US-B.I. PHARMACEUTICALS,INC./RIDGEFIELD-2011-BP-22234BP

PATIENT
  Age: 69 Year
  Sex: Male

DRUGS (7)
  1. TOPROL-XL [Concomitant]
     Route: 048
  2. LORAZEPAM [Concomitant]
     Route: 048
  3. LIPITOR [Concomitant]
     Route: 048
  4. RHYTHMOL [Concomitant]
     Route: 048
  5. AVAPRO [Concomitant]
     Route: 048
  6. NIACIN [Concomitant]
     Route: 048
  7. PRADAXA [Suspect]
     Indication: ATRIAL FIBRILLATION
     Dosage: 300 MG
     Route: 048
     Dates: end: 20110814

REACTIONS (3)
  - GASTROINTESTINAL HAEMORRHAGE [None]
  - COLONIC POLYP [None]
  - RECTAL HAEMORRHAGE [None]
